FAERS Safety Report 17023648 (Version 5)
Quarter: 2019Q4

REPORT INFORMATION
  Report Type: Report from Study
  Country: BR (occurrence: BR)
  Receive Date: 20191113
  Receipt Date: 20191209
  Transmission Date: 20200122
  Serious: Yes (Life-Threatening, Hospitalization)
  Sender: FDA-Public Use
  Company Number: BR-ROCHE-2469077

PATIENT
  Age: 47 Year
  Sex: Female
  Weight: 90.35 kg

DRUGS (44)
  1. MIRTAZAPINE. [Concomitant]
     Active Substance: MIRTAZAPINE
     Route: 065
     Dates: start: 20191114, end: 20191121
  2. MIRTAZAPINE. [Concomitant]
     Active Substance: MIRTAZAPINE
     Route: 065
     Dates: start: 20191201
  3. AMPICILLIN [Concomitant]
     Active Substance: AMPICILLIN
     Route: 065
     Dates: start: 20191112, end: 20191117
  4. PLACEBO [Suspect]
     Active Substance: UNSPECIFIED INGREDIENT
     Indication: RELAPSING-REMITTING MULTIPLE SCLEROSIS
     Route: 058
     Dates: start: 20121220, end: 20121220
  5. OCRELIZUMAB. [Suspect]
     Active Substance: OCRELIZUMAB
     Dosage: INFUSION COMPLETED WITHOUT INTERVENTION
     Route: 042
     Dates: start: 20151020, end: 20151020
  6. CHLORPROMAZINE. [Concomitant]
     Active Substance: CHLORPROMAZINE
     Route: 065
     Dates: start: 20191111, end: 20191112
  7. OCRELIZUMAB. [Suspect]
     Active Substance: OCRELIZUMAB
     Dosage: INFUSION COMPLETED WITHOUT INTERVENTION
     Route: 042
     Dates: start: 20130124, end: 20130124
  8. OCRELIZUMAB. [Suspect]
     Active Substance: OCRELIZUMAB
     Dosage: INFUSION COMPLETED WITHOUT INTERVENTION
     Route: 042
     Dates: start: 20180810, end: 20180810
  9. GLUCOSAMINE AND CHONDROITIN [Concomitant]
     Active Substance: CHONDROITIN SULFATE (BOVINE)\GLUCOSAMINE HYDROCHLORIDE
     Indication: PAIN
     Dosage: 1 UNITS
     Route: 065
     Dates: start: 20160622
  10. OCRELIZUMAB. [Suspect]
     Active Substance: OCRELIZUMAB
     Dosage: INFUSION COMPLETED WITHOUT INTERVENTION
     Route: 042
     Dates: start: 20141125, end: 20141125
  11. HIGROTON [Concomitant]
     Active Substance: CHLORTHALIDONE
     Indication: HYPERTENSION
     Route: 065
     Dates: start: 20170110
  12. SYNTHROID [Concomitant]
     Active Substance: LEVOTHYROXINE SODIUM
     Indication: HYPOTHYROIDISM
     Route: 065
     Dates: start: 201206
  13. PEMBROLIZUMAB. [Concomitant]
     Active Substance: PEMBROLIZUMAB
     Indication: PROGRESSIVE MULTIFOCAL LEUKOENCEPHALOPATHY
     Route: 065
     Dates: start: 20191111
  14. ONDANSETRON [Concomitant]
     Active Substance: ONDANSETRON
     Dosage: 1 AMPULE
     Route: 065
     Dates: start: 20191108, end: 20191108
  15. CHLORPROMAZINE. [Concomitant]
     Active Substance: CHLORPROMAZINE
     Route: 065
     Dates: start: 20191203, end: 20191203
  16. PLACEBO [Suspect]
     Active Substance: UNSPECIFIED INGREDIENT
     Route: 058
     Dates: start: 20141024, end: 20141110
  17. OCRELIZUMAB. [Suspect]
     Active Substance: OCRELIZUMAB
     Dosage: INFUSION COMPLETED WITHOUT INTERVENTION
     Route: 042
     Dates: start: 20131119, end: 20131119
  18. OCRELIZUMAB. [Suspect]
     Active Substance: OCRELIZUMAB
     Dosage: INFUSION COMPLETED WITHOUT INTERVENTION
     Route: 042
     Dates: start: 20140522, end: 20140522
  19. PARACETAMOL [Concomitant]
     Active Substance: ACETAMINOPHEN
     Dosage: (WEEK 0 TO WEEK 240) 13/NOV/2014, 25/NOV/2014, 30/APR/2015, 20/OCT/2015,  05/APR/2016, 23/SEP/2016,
     Route: 065
     Dates: start: 20140522
  20. CHLORPROMAZINE. [Concomitant]
     Active Substance: CHLORPROMAZINE
     Route: 065
     Dates: start: 20191109, end: 20191109
  21. MIRTAZAPINE. [Concomitant]
     Active Substance: MIRTAZAPINE
     Route: 065
     Dates: start: 20191109, end: 20191111
  22. OCRELIZUMAB. [Suspect]
     Active Substance: OCRELIZUMAB
     Indication: RELAPSING-REMITTING MULTIPLE SCLEROSIS
     Dosage: INFUSION COMPLETED WITHOUT INTERVENTION
     Route: 042
     Dates: start: 20141113, end: 20141113
  23. OCRELIZUMAB. [Suspect]
     Active Substance: OCRELIZUMAB
     Dosage: INFUSION COMPLETED WITHOUT INTERVENTION
     Route: 042
     Dates: start: 20160923, end: 20160923
  24. OCRELIZUMAB. [Suspect]
     Active Substance: OCRELIZUMAB
     Dosage: INFUSION COMPLETED WITHOUT INTERVENTION
     Route: 042
     Dates: start: 20180206, end: 20180206
  25. PROMETAZINA [PROMETHAZINE] [Concomitant]
     Dosage: (WEEK 24 TO WEEK 240) 13/JUN/2013, 19/NOV/2013, 22/MAY/2014, 13/NOV/2014, 25/NOV/2014, 30/APR/2015,
     Route: 065
     Dates: start: 20130124
  26. GABALON [Concomitant]
     Active Substance: BACLOFEN
     Dosage: 1 TABLET
     Route: 065
     Dates: start: 20191110, end: 20191121
  27. TAZOCIN [Concomitant]
     Active Substance: PIPERACILLIN SODIUM\TAZOBACTAM SODIUM
     Indication: PNEUMONIA
     Route: 065
     Dates: start: 20191201
  28. OCRELIZUMAB. [Suspect]
     Active Substance: OCRELIZUMAB
     Dosage: INFUSION COMPLETED WITHOUT INTERVENTION
     Route: 042
     Dates: start: 20170307, end: 20170307
  29. OCRELIZUMAB. [Suspect]
     Active Substance: OCRELIZUMAB
     Dosage: INFUSION COMPLETED WITHOUT INTERVENTION
     Route: 042
     Dates: start: 20170822, end: 20170822
  30. OCRELIZUMAB. [Suspect]
     Active Substance: OCRELIZUMAB
     Dosage: INFUSION COMPLETED WITHOUT INTERVENTION
     Route: 042
     Dates: start: 20190125, end: 20190125
  31. OCRELIZUMAB. [Suspect]
     Active Substance: OCRELIZUMAB
     Dosage: INFUSION COMPLETED WITHOUT INTERVENTION
     Route: 042
     Dates: start: 20190731, end: 20190731
  32. DROSPIRENONE [Concomitant]
     Active Substance: DROSPIRENONE
     Indication: OVARIAN CYST
     Route: 065
     Dates: start: 20140425, end: 20140515
  33. ENOXAPARIN [Concomitant]
     Active Substance: ENOXAPARIN
     Route: 065
     Dates: start: 20191108, end: 20191121
  34. OLANZAPINE. [Concomitant]
     Active Substance: OLANZAPINE
     Route: 065
     Dates: start: 20191108, end: 20191109
  35. VITAMIN C [Concomitant]
     Active Substance: ASCORBIC ACID
     Route: 065
     Dates: start: 20191110, end: 20191121
  36. CHLORPROMAZINE. [Concomitant]
     Active Substance: CHLORPROMAZINE
     Dosage: 10 DROPS
     Route: 065
     Dates: start: 20191113, end: 20191113
  37. OCRELIZUMAB. [Suspect]
     Active Substance: OCRELIZUMAB
     Dosage: INFUSION COMPLETED WITHOUT INTERVENTION
     Route: 042
     Dates: start: 20160405, end: 20160405
  38. NUTREN SENIOR [Concomitant]
     Route: 065
     Dates: start: 20191113, end: 20191115
  39. OCRELIZUMAB. [Suspect]
     Active Substance: OCRELIZUMAB
     Indication: RELAPSING-REMITTING MULTIPLE SCLEROSIS
     Dosage: INFUSION WAS INTERRUPTED DUE TO INFUSION RELATED REACTION
     Route: 042
     Dates: start: 20121220, end: 20121220
  40. OCRELIZUMAB. [Suspect]
     Active Substance: OCRELIZUMAB
     Dosage: INFUSION COMPLETED WITHOUT INTERVENTION
     Route: 042
     Dates: start: 20130613, end: 20130613
  41. OCRELIZUMAB. [Suspect]
     Active Substance: OCRELIZUMAB
     Dosage: INFUSION COMPLETED WITHOUT INTERVENTION
     Route: 042
     Dates: start: 20150430, end: 20150430
  42. DRAMAMINE [Concomitant]
     Active Substance: DIMENHYDRINATE
     Dosage: FOR SLEEP INDUCTION
     Route: 065
     Dates: start: 20130206
  43. METHYLPREDNISOLONE. [Concomitant]
     Active Substance: METHYLPREDNISOLONE
     Dosage: (WEEK 2 TO WEEK 240) 24/JAN/2013, 13/JUN/2013, 19/NOV/2013, 22/MAY/2014, 13/NOV/2014, 25/NOV/2014, 3
     Route: 065
     Dates: start: 20121220
  44. AMPICILLIN;SULBACTAM [Concomitant]
     Active Substance: AMPICILLIN SODIUM\SULBACTAM SODIUM
     Indication: PNEUMONIA
     Route: 065
     Dates: start: 20191111

REACTIONS (1)
  - Encephalitis [Not Recovered/Not Resolved]

NARRATIVE: CASE EVENT DATE: 20191105
